FAERS Safety Report 13147572 (Version 3)
Quarter: 2025Q3

REPORT INFORMATION
  Report Type: Spontaneous
  Country: JP (occurrence: JP)
  Receive Date: 20170125
  Receipt Date: 20250822
  Transmission Date: 20251020
  Serious: Yes (Hospitalization, Other)
  Sender: ACCORD
  Company Number: JP-ACCORD-047723

PATIENT
  Age: 65 Year
  Sex: Female

DRUGS (3)
  1. CAPECITABINE [Suspect]
     Active Substance: CAPECITABINE
     Indication: Gastric cancer stage IV
     Dosage: 7 CYCLE
  2. CISPLATIN [Suspect]
     Active Substance: CISPLATIN
     Indication: Gastric cancer stage IV
  3. TRASTUZUMAB [Suspect]
     Active Substance: TRASTUZUMAB
     Indication: Gastric cancer stage IV

REACTIONS (4)
  - Peritonitis [Unknown]
  - Renal impairment [Unknown]
  - Palmar-plantar erythrodysaesthesia syndrome [Unknown]
  - Gastric perforation [Unknown]
